FAERS Safety Report 5942761-6 (Version None)
Quarter: 2008Q4

REPORT INFORMATION
  Report Type: 
  Country: None (occurrence: None)
  Receive Date: 20081106
  Receipt Date: 20081027
  Transmission Date: 20090506
  Serious: Yes (Hospitalization)
  Sender: FDA-Public Use
  Company Number: DE-JNJFOC-20080905481

PATIENT
  Sex: Male
  Weight: 74 kg

DRUGS (1)
  1. EPI-PEVARYL [Suspect]
     Indication: TINEA VERSICOLOUR
     Dosage: DAILY
     Route: 061

REACTIONS (3)
  - NAUSEA [None]
  - POISONING [None]
  - VOMITING [None]
